FAERS Safety Report 21405428 (Version 3)
Quarter: 2024Q4

REPORT INFORMATION
  Report Type: Report from Study
  Country: US (occurrence: US)
  Receive Date: 20221004
  Receipt Date: 20241024
  Transmission Date: 20250115
  Serious: Yes (Other)
  Sender: ABBVIE
  Company Number: US-ABBVIE-4135632

PATIENT
  Sex: Male

DRUGS (2)
  1. HUMIRA [Suspect]
     Active Substance: ADALIMUMAB
     Indication: Rheumatoid arthritis
     Dosage: CITRATE FREE
     Route: 058
  2. HUMIRA [Suspect]
     Active Substance: ADALIMUMAB
     Route: 058

REACTIONS (6)
  - Brain neoplasm malignant [Unknown]
  - Injection site discharge [Unknown]
  - Necrosis [Unknown]
  - Bedridden [Unknown]
  - Mobility decreased [Unknown]
  - Brain oedema [Unknown]

NARRATIVE: CASE EVENT DATE: 20200101
